FAERS Safety Report 7355909-6 (Version None)
Quarter: 2011Q1

REPORT INFORMATION
  Report Type: 
  Country: None (occurrence: None)
  Receive Date: 20110316
  Receipt Date: 20110218
  Transmission Date: 20110831
  Serious: No
  Sender: FDA-Public Use
  Company Number: US-B.I. PHARMACEUTICALS,INC./RIDGEFIELD-2011-BP-06097BP

PATIENT
  Sex: Female

DRUGS (11)
  1. OSCAL [Concomitant]
  2. CLARITIN [Concomitant]
     Indication: HYPERSENSITIVITY
  3. AVAPRO [Concomitant]
     Indication: HYPERTENSION
  4. ALLOPURINOL [Concomitant]
     Indication: GOUT
  5. D3 [Concomitant]
  6. PRADAXA [Suspect]
     Indication: ATRIAL FIBRILLATION
     Dosage: 300 MG
     Route: 048
     Dates: start: 20110121
  7. DILTIAZEM [Concomitant]
     Indication: ATRIAL FIBRILLATION
  8. TOPROL-XL [Concomitant]
  9. TRICOR [Concomitant]
     Indication: BLOOD CHOLESTEROL INCREASED
  10. PRAVASTATIN [Concomitant]
     Indication: BLOOD CHOLESTEROL INCREASED
  11. HYDROCHLOROTHIAZIDE [Concomitant]
     Indication: FLUID RETENTION

REACTIONS (5)
  - PAIN [None]
  - BACK PAIN [None]
  - GASTRITIS [None]
  - FATIGUE [None]
  - ASTHENIA [None]
